FAERS Safety Report 8091344-3 (Version None)
Quarter: 2012Q1

REPORT INFORMATION
  Report Type: 
  Country: None (occurrence: None)
  Receive Date: 20120131
  Receipt Date: 20120119
  Transmission Date: 20120608
  Serious: Yes (Other)
  Sender: FDA-Public Use
  Company Number: AU-ELI_LILLY_AND_COMPANY-AU201110007091

PATIENT
  Age: 86 Year
  Sex: Male
  Weight: 70 kg

DRUGS (7)
  1. AMLODIPINE [Concomitant]
     Indication: HYPERTENSION
     Dosage: 10 MG, UNK
  2. PANTOPRAZOLE [Concomitant]
     Dosage: 40 MG, UNK
  3. LIPITOR [Concomitant]
  4. DIAZEPAM [Concomitant]
     Dosage: 5 MG, UNK
  5. ZYPREXA [Suspect]
     Indication: SLEEP DISORDER
     Dosage: 5 MG, UNK
  6. ATENOLOL [Concomitant]
     Indication: HYPERTENSION
     Dosage: 50 MG, UNK
  7. PERINDOPRIL ERBUMINE [Concomitant]
     Indication: HYPERTENSION
     Dosage: 5 MG, UNK

REACTIONS (2)
  - OFF LABEL USE [None]
  - MYOCARDIAL INFARCTION [None]
